FAERS Safety Report 6017879-2 (Version None)
Quarter: 2008Q4

REPORT INFORMATION
  Report Type: 
  Country: None (occurrence: None)
  Receive Date: 20081223
  Receipt Date: 20081212
  Transmission Date: 20090506
  Serious: Yes (Other)
  Sender: FDA-Public Use
  Company Number: US-ABBOTT-05P-163-0308442-00

PATIENT
  Sex: Female
  Weight: 77.18 kg

DRUGS (7)
  1. SYNTHROID [Suspect]
     Indication: HYPOTHYROIDISM
     Route: 048
     Dates: start: 19840101, end: 20020101
  2. SYNTHROID [Suspect]
     Route: 048
     Dates: start: 20020101
  3. SYNTHROID [Suspect]
     Route: 048
     Dates: start: 20050101
  4. SYNTHROID [Suspect]
     Route: 048
  5. DILANTIN [Suspect]
     Indication: TEMPORAL LOBE EPILEPSY
     Route: 048
     Dates: start: 19890101
  6. REMERON [Concomitant]
     Indication: SLEEP DISORDER
     Route: 048
     Dates: start: 19970601
  7. DESYREL [Concomitant]
     Indication: SLEEP DISORDER
     Dosage: 2 TABLETS
     Route: 048
     Dates: start: 19970601

REACTIONS (7)
  - ALOPECIA [None]
  - BLOOD THYROID STIMULATING HORMONE [None]
  - CONVULSION [None]
  - EXOPHTHALMOS [None]
  - TEMPORAL LOBE EPILEPSY [None]
  - THYROXINE ABNORMAL [None]
  - TRI-IODOTHYRONINE ABNORMAL [None]
